FAERS Safety Report 4398081-7 (Version None)
Quarter: 2004Q3

REPORT INFORMATION
  Report Type: 
  Country: None (occurrence: None)
  Receive Date: 20040713
  Receipt Date: 20040630
  Transmission Date: 20050211
  Serious: Yes (Disabling)
  Sender: FDA-Public Use
  Company Number: 2004044921

PATIENT
  Age: 53 Year
  Sex: Female

DRUGS (3)
  1. GABAPENTIN [Suspect]
     Indication: PAIN
     Dosage: 300 MG (300 MG, DAILY INTERVAL: EVERYDAY), ORAL
     Route: 048
     Dates: start: 20040512, end: 20040601
  2. BACLOFEN [Concomitant]
  3. ALBUTEROL SULFATE [Concomitant]

REACTIONS (7)
  - CHEST DISCOMFORT [None]
  - EYE SWELLING [None]
  - NAUSEA [None]
  - PRURITUS [None]
  - STEATORRHOEA [None]
  - SWOLLEN TONGUE [None]
  - VOMITING [None]
